FAERS Safety Report 6755502-X (Version None)
Quarter: 2010Q2

REPORT INFORMATION
  Report Type: 
  Country: None (occurrence: None)
  Receive Date: 20100604
  Receipt Date: 20100527
  Transmission Date: 20101027
  Serious: Yes (Life-Threatening, Hospitalization)
  Sender: FDA-Public Use
  Company Number: IT-BAYER-201024418GPV

PATIENT
  Age: 83 Year
  Sex: Female
  Weight: 54 kg

DRUGS (17)
  1. SORAFENIB [Suspect]
     Indication: HEPATIC NEOPLASM MALIGNANT
     Route: 048
     Dates: start: 20100217, end: 20100315
  2. SORAFENIB [Suspect]
     Dosage: TOTAL DAILY DOSE: 800 MG
     Route: 048
     Dates: start: 20091125, end: 20091220
  3. SORAFENIB [Suspect]
     Route: 048
     Dates: start: 20091221, end: 20100118
  4. SORAFENIB [Suspect]
     Route: 048
     Dates: start: 20100120, end: 20100216
  5. SORAFENIB [Suspect]
     Route: 048
     Dates: start: 20100316, end: 20100408
  6. DOXORUBICIN HCL [Suspect]
     Indication: HEPATIC NEOPLASM MALIGNANT
     Dosage: VIA TACE PRCEDURE
  7. PAROXETINE [Concomitant]
     Indication: DEPRESSION
     Route: 048
     Dates: start: 20100410, end: 20100411
  8. KADIUR [Concomitant]
     Indication: HEPATIC CIRRHOSIS
     Route: 048
     Dates: start: 20060101, end: 20100411
  9. INDERAL [Concomitant]
     Indication: TACHYCARDIA
     Route: 048
     Dates: start: 20100326, end: 20100430
  10. COEFFERALGAN [Concomitant]
     Indication: NEUROPATHY PERIPHERAL
     Route: 048
     Dates: start: 20080101, end: 20100401
  11. CITRATE MAGNESIUM [Concomitant]
     Indication: SUPPLEMENTATION THERAPY
     Route: 048
     Dates: start: 20040101, end: 20100401
  12. RIOPAN [Concomitant]
     Indication: GASTRITIS
     Route: 048
     Dates: start: 20090901, end: 20100401
  13. LAEVOLAC [Concomitant]
     Indication: ENCEPHALOPATHY
     Route: 048
     Dates: start: 20100410, end: 20100411
  14. QUESTRAN [Concomitant]
     Indication: PRURITUS
     Route: 048
     Dates: start: 20100217, end: 20100401
  15. MAG 2 [Concomitant]
     Indication: MUSCLE SPASMS
     Route: 048
     Dates: start: 20100414
  16. MAG 2 [Concomitant]
     Route: 048
     Dates: start: 20100217, end: 20100401
  17. NORMIX [Concomitant]
     Indication: ENCEPHALOPATHY
     Route: 048
     Dates: start: 20100410, end: 20100414

REACTIONS (1)
  - CHRONIC OBSTRUCTIVE PULMONARY DISEASE [None]
